FAERS Safety Report 4736169-9 (Version None)
Quarter: 2005Q3

REPORT INFORMATION
  Report Type: 
  Country: None (occurrence: None)
  Receive Date: 20050728
  Receipt Date: 20050525
  Transmission Date: 20060218
  Serious: Yes (Hospitalization, Other)
  Sender: FDA-Public Use
  Company Number: 200514520US

PATIENT
  Sex: Female

DRUGS (2)
  1. KETEK [Suspect]
     Dosage: ONCE
  2. FLUOROQUINOLONE NOS [Concomitant]

REACTIONS (3)
  - DYSARTHRIA [None]
  - MYASTHENIA GRAVIS [None]
  - THROAT TIGHTNESS [None]
